FAERS Safety Report 6992919-2 (Version None)
Quarter: 2010Q3

REPORT INFORMATION
  Report Type: 
  Country: None (occurrence: None)
  Receive Date: 20100917
  Receipt Date: 20100907
  Transmission Date: 20110219
  Serious: Yes (Other)
  Sender: FDA-Public Use
  Company Number: JP-PFIZER INC-2010113090

PATIENT
  Age: 50 Year
  Sex: Female

DRUGS (2)
  1. XALATAN [Suspect]
     Indication: GLAUCOMA
     Dosage: 1 GTT, 1X/DAY
     Route: 031
     Dates: start: 20100801
  2. XALATAN [Suspect]
     Dosage: UNK

REACTIONS (2)
  - CONJUNCTIVAL HYPERAEMIA [None]
  - INTRAOCULAR PRESSURE INCREASED [None]
